FAERS Safety Report 16012990 (Version 1)
Quarter: 2019Q1

REPORT INFORMATION
  Report Type: Spontaneous
  Country: US (occurrence: US)
  Receive Date: 20190227
  Receipt Date: 20190227
  Transmission Date: 20190418
  Serious: Yes (Disabling, Other)
  Sender: FDA-Public Use
  Company Number: None

PATIENT
  Age: 64 Year
  Sex: Female
  Weight: 119.25 kg

DRUGS (3)
  1. ESCITALOPRAM [Suspect]
     Active Substance: ESCITALOPRAM OXALATE
     Indication: DEPRESSION
     Dosage: ?          QUANTITY:1 TABLET(S);?
     Route: 048
     Dates: start: 20090901, end: 20181005
  2. ASPIRIN. [Concomitant]
     Active Substance: ASPIRIN
  3. LAMOTRIGINE. [Concomitant]
     Active Substance: LAMOTRIGINE

REACTIONS (6)
  - Tremor [None]
  - Gait disturbance [None]
  - Fall [None]
  - Arthropathy [None]
  - Muscular weakness [None]
  - Balance disorder [None]

NARRATIVE: CASE EVENT DATE: 20130901
